FAERS Safety Report 7660310-1 (Version None)
Quarter: 2011Q3

REPORT INFORMATION
  Report Type: 
  Country: None (occurrence: None)
  Receive Date: 20110805
  Receipt Date: 20110727
  Transmission Date: 20111222
  Serious: Yes (Hospitalization, Other)
  Sender: FDA-Public Use
  Company Number: US-B.I. PHARMACEUTICALS,INC./RIDGEFIELD-2011-BP-09947BP

PATIENT
  Age: 81 Year
  Sex: Male
  Weight: 117.93 kg

DRUGS (5)
  1. SIMVASTATIN [Concomitant]
     Dosage: 20 MG
  2. PRADAXA [Suspect]
     Indication: ANTICOAGULANT THERAPY
     Dosage: 300 MG
     Route: 048
     Dates: start: 20110201
  3. PRADAXA [Suspect]
     Indication: ATRIAL FIBRILLATION
  4. AMLODIPINE [Concomitant]
     Dosage: 5 MG
  5. NAMENDA [Concomitant]
     Dosage: 10 MG

REACTIONS (1)
  - EMBOLIC STROKE [None]
